FAERS Safety Report 18234082 (Version 2)
Quarter: 2021Q3

REPORT INFORMATION
  Report Type: Spontaneous
  Country: US (occurrence: US)
  Receive Date: 20200904
  Receipt Date: 20210714
  Transmission Date: 20211014
  Serious: No
  Sender: FDA-Public Use
  Company Number: US-SA-2020SA237091

PATIENT
  Age: 75 Year
  Sex: Male

DRUGS (15)
  1. DOXYCYCLINE HCL [Concomitant]
     Active Substance: DOXYCYCLINE HYDROCHLORIDE
  2. FOLIC ACID. [Concomitant]
     Active Substance: FOLIC ACID
  3. NOVOLOG [Concomitant]
     Active Substance: INSULIN ASPART
     Dosage: 100/ML
  4. OMEPRAZOLE. [Concomitant]
     Active Substance: OMEPRAZOLE
  5. DUPIXENT [Suspect]
     Active Substance: DUPILUMAB
     Indication: DERMATITIS ATOPIC
     Dosage: 300 MG, QOW
     Route: 058
     Dates: start: 20190424
  6. TRAMADOL. [Concomitant]
     Active Substance: TRAMADOL
  7. ROPINIROLE. [Concomitant]
     Active Substance: ROPINIROLE
  8. LEVOCETIRIZIN [Concomitant]
     Active Substance: LEVOCETIRIZINE DIHYDROCHLORIDE
  9. METHOTREXATE. [Concomitant]
     Active Substance: METHOTREXATE
  10. CYCLOBENZAPRIN [Concomitant]
     Active Substance: CYCLOBENZAPRINE
  11. CALTRATE [Concomitant]
     Active Substance: CALCIUM CARBONATE
     Dosage: 600 CHW 600?800
  12. HYDROXYZINE HCL [Concomitant]
     Active Substance: HYDROXYZINE HYDROCHLORIDE
  13. ENALAPRIL [Concomitant]
     Active Substance: ENALAPRIL
     Dosage: 5 UNK
  14. INSULIN ASPART [Concomitant]
     Active Substance: INSULIN ASPART
     Dosage: 100/ML
  15. FLUTICASONE. [Concomitant]
     Active Substance: FLUTICASONE

REACTIONS (3)
  - Product dose omission issue [Unknown]
  - Rash [Not Recovered/Not Resolved]
  - Pruritus [Not Recovered/Not Resolved]
